FAERS Safety Report 15868330 (Version 2)
Quarter: 2020Q2

REPORT INFORMATION
  Report Type: Spontaneous
  Country: CA (occurrence: CA)
  Receive Date: 20190125
  Receipt Date: 20200619
  Transmission Date: 20200713
  Serious: Yes (Other)
  Sender: FDA-Public Use
  Company Number: CA-BAXTER-2019BAX001630

PATIENT
  Age: 70 Year
  Sex: Male

DRUGS (10)
  1. CARBOPLATIN. [Suspect]
     Active Substance: CARBOPLATIN
     Indication: THYMIC CANCER METASTATIC
     Dosage: SOLUTION INTRAVENOUS
     Route: 065
  2. PACLITAXEL. [Suspect]
     Active Substance: PACLITAXEL
     Indication: THYMIC CANCER METASTATIC
     Dosage: LIQUID INTRAVENOUS
     Route: 065
  3. DOXORUBICIN HYDROCHLORIDE. [Suspect]
     Active Substance: DOXORUBICIN HYDROCHLORIDE
     Indication: THYMIC CANCER METASTATIC
     Route: 065
  4. ETOPOSIDE. [Suspect]
     Active Substance: ETOPOSIDE
     Indication: THYMIC CANCER METASTATIC
     Dosage: DOSAGE FORM NOT SPECIFIED
     Route: 065
  5. PROCYTOX (CYCLOPHOSPHAMIDE) 2000MG/VIAL [Suspect]
     Active Substance: CYCLOPHOSPHAMIDE
     Indication: THYMIC CANCER METASTATIC
     Dosage: DOSAGE FORM NOT SPECIFIED
     Route: 065
  6. IFEX [Suspect]
     Active Substance: IFOSFAMIDE
     Indication: THYMIC CANCER METASTATIC
     Dosage: USP, POWDER FOR SOLUTION INTRAVENOUS
     Route: 065
  7. CISPLATIN. [Suspect]
     Active Substance: CISPLATIN
     Indication: THYMIC CANCER METASTATIC
     Dosage: SOLUTION INTRAVENOUS
     Route: 065
  8. SUTENT [Suspect]
     Active Substance: SUNITINIB MALATE
     Indication: THYMIC CANCER METASTATIC
     Route: 065
  9. VINCRISTINE SULFATE. [Suspect]
     Active Substance: VINCRISTINE SULFATE
     Indication: THYMIC CANCER METASTATIC
     Dosage: DOSAGE FORM NOT SPECIFIED
     Route: 065
  10. CYTARABINE. [Suspect]
     Active Substance: CYTARABINE
     Indication: THYMIC CANCER METASTATIC
     Dosage: DOSAGE FORM NOT SPECIFIED
     Route: 065

REACTIONS (7)
  - Lymphadenopathy mediastinal [Not Recovered/Not Resolved]
  - Blastic plasmacytoid dendritic cell neoplasia [Recovered/Resolved]
  - Product use in unapproved indication [Recovered/Resolved]
  - Second primary malignancy [Recovered/Resolved]
  - Hepatic lesion [Not Recovered/Not Resolved]
  - Skin mass [Not Recovered/Not Resolved]
  - Malignant neoplasm progression [Not Recovered/Not Resolved]
